FAERS Safety Report 16721210 (Version 1)
Quarter: 2019Q3

REPORT INFORMATION
  Report Type: Spontaneous
  Country: US (occurrence: US)
  Receive Date: 20190703
  Receipt Date: 20190703
  Transmission Date: 20191005
  Serious: No
  Sender: FDA-Public Use
  Company Number: None

PATIENT
  Age: 41 Year
  Sex: Female

DRUGS (4)
  1. NORTHERA [Suspect]
     Active Substance: DROXIDOPA
     Indication: SYNCOPE
     Route: 048
     Dates: start: 20180811
  2. NORTHERA [Suspect]
     Active Substance: DROXIDOPA
     Indication: DYSPNOEA
     Route: 048
     Dates: start: 20180811
  3. NORTHERA [Suspect]
     Active Substance: DROXIDOPA
     Indication: PALPITATIONS
     Route: 048
     Dates: start: 20180811
  4. NORTHERA [Suspect]
     Active Substance: DROXIDOPA
     Indication: DIZZINESS
     Route: 048
     Dates: start: 20180811

REACTIONS (4)
  - Malaise [None]
  - Vomiting [None]
  - Therapy cessation [None]
  - Gastroenteritis viral [None]

NARRATIVE: CASE EVENT DATE: 20190702
